FAERS Safety Report 6019007-6 (Version None)
Quarter: 2008Q4

REPORT INFORMATION
  Report Type: 
  Country: None (occurrence: None)
  Receive Date: 20081224
  Receipt Date: 20081119
  Transmission Date: 20090506
  Serious: Yes (Hospitalization, Other)
  Sender: FDA-Public Use
  Company Number: BR-NOVOPROD-280296

PATIENT
  Age: 58 Year
  Sex: Female
  Weight: 94 kg

DRUGS (7)
  1. LEVEMIR [Suspect]
     Indication: DIABETES MELLITUS
     Dosage: 20 IU, QD
  2. NOVOLOG MIX 70/30 [Suspect]
     Indication: DIABETES MELLITUS
     Dosage: UNK, UNK
  3. PIOGLITAZONE [Concomitant]
     Dosage: 30 MG, QD
     Route: 048
  4. METFORMIN HCL [Concomitant]
     Dosage: 850 MG 3 TIMES DAILY
     Route: 048
  5. HIDROCLOROTIAZ [Concomitant]
  6. AMLODIPINE [Concomitant]
     Dosage: 5 MG, QD
  7. ACETYLSALICYLIC ACID [Concomitant]
     Dosage: 100 MG 2 TIMES DAILY
     Route: 048

REACTIONS (8)
  - BLOOD GLUCOSE FLUCTUATION [None]
  - BLOOD GLUCOSE INCREASED [None]
  - INJECTION SITE ERYTHEMA [None]
  - INJECTION SITE HAEMATOMA [None]
  - ORAL PAIN [None]
  - PAIN IN EXTREMITY [None]
  - SKIN CANCER [None]
  - URINARY TRACT INFECTION [None]
